FAERS Safety Report 17025489 (Version 6)
Quarter: 2021Q1

REPORT INFORMATION
  Report Type: Report from Study
  Country: BR (occurrence: BR)
  Receive Date: 20191113
  Receipt Date: 20210302
  Transmission Date: 20210419
  Serious: Yes (Hospitalization)
  Sender: FDA-Public Use
  Company Number: NVSC2019BR032842

PATIENT
  Sex: Female

DRUGS (3)
  1. COSENTYX [Suspect]
     Active Substance: SECUKINUMAB
     Dosage: UNK
     Route: 065
     Dates: start: 201911
  2. COSENTYX [Suspect]
     Active Substance: SECUKINUMAB
     Indication: ANKYLOSING SPONDYLITIS
     Dosage: 150 MG (WEEKLY DOSES + MONTHLY DOSES)
     Route: 058
     Dates: start: 20191021
  3. COSENTYX [Suspect]
     Active Substance: SECUKINUMAB
     Dosage: UNK
     Route: 065
     Dates: start: 20210122

REACTIONS (7)
  - Intervertebral disc protrusion [Not Recovered/Not Resolved]
  - Gait disturbance [Unknown]
  - Therapeutic response decreased [Unknown]
  - Pain [Unknown]
  - Influenza [Unknown]
  - Cough [Unknown]
  - Therapeutic product effect incomplete [Not Recovered/Not Resolved]
